FAERS Safety Report 10106700 (Version 2)
Quarter: 2014Q3

REPORT INFORMATION
  Report Type: Other
  Country: US (occurrence: US)
  Receive Date: 20140424
  Receipt Date: 20140717
  Transmission Date: 20150326
  Serious: Yes (Hospitalization, Other)
  Sender: FDA-Public Use
  Company Number: US-GSKPPD-2014GSK004299

PATIENT
  Age: 32 Year
  Weight: 263.32 kg

DRUGS (4)
  1. CAPTOPRIL. [Concomitant]
     Active Substance: CAPTOPRIL
  2. ASPIRIN. [Concomitant]
     Active Substance: ASPIRIN
  3. AVANDIA [Suspect]
     Active Substance: ROSIGLITAZONE MALEATE
     Indication: DIABETES MELLITUS
     Dosage: DATES OF AVANDIA USE COULD NOT BE CONFIRMED IN RECORDS REVIEWED.
     Route: 048
  4. ATENOLOL. [Concomitant]
     Active Substance: ATENOLOL

REACTIONS (2)
  - Cerebrovascular accident [None]
  - Cardiac failure congestive [Recovered/Resolved]

NARRATIVE: CASE EVENT DATE: 20081026
